FAERS Safety Report 5332575-2 (Version None)
Quarter: 2007Q2

REPORT INFORMATION
  Report Type: 
  Country: None (occurrence: None)
  Receive Date: 20070523
  Receipt Date: 20070509
  Transmission Date: 20071010
  Serious: Yes (Hospitalization)
  Sender: FDA-Public Use
  Company Number: US-SHR-US-2007-015502

PATIENT
  Age: 43 Year
  Sex: Female
  Weight: 90.703 kg

DRUGS (1)
  1. BETASERON [Suspect]
     Indication: RELAPSING-REMITTING MULTIPLE SCLEROSIS
     Dosage: 8 MIU, EVERY 2D
     Route: 058
     Dates: start: 20040420

REACTIONS (6)
  - ACNE [None]
  - ANAEMIA [None]
  - HYSTERECTOMY [None]
  - INJECTION SITE BRUISING [None]
  - INJECTION SITE PAIN [None]
  - PROCEDURAL PAIN [None]
